FAERS Safety Report 20459671 (Version 1)
Quarter: 2022Q1

REPORT INFORMATION
  Report Type: Spontaneous
  Country: US (occurrence: US)
  Receive Date: 20220211
  Receipt Date: 20220211
  Transmission Date: 20220423
  Serious: No
  Sender: FDA-Public Use
  Company Number: US-VERICEL-US-VCEL-21-000090

PATIENT
  Age: 50 Year
  Sex: Female

DRUGS (1)
  1. MACI [Suspect]
     Active Substance: AUTOLOGOUS CULTURED CHONDROCYTES\SUS SCROFA COLLAGEN
     Indication: Knee deformity
     Dosage: 2 DOSAGE FORM, SINGLE
     Route: 050
     Dates: start: 20180625

REACTIONS (6)
  - Pain [Unknown]
  - Joint noise [Unknown]
  - Fall [Unknown]
  - Loose body in joint [Unknown]
  - Swelling [Unknown]
  - Device material issue [Unknown]

NARRATIVE: CASE EVENT DATE: 20210418
